FAERS Safety Report 7364323-9 (Version None)
Quarter: 2011Q1

REPORT INFORMATION
  Report Type: 
  Country: None (occurrence: None)
  Receive Date: 20110321
  Receipt Date: 20100825
  Transmission Date: 20110831
  Serious: Yes (Hospitalization)
  Sender: FDA-Public Use
  Company Number: US-BAYER-201026228NA

PATIENT
  Sex: Female
  Weight: 61.224 kg

DRUGS (5)
  1. CELEXA [Concomitant]
     Dosage: UNK
     Dates: start: 20070101
  2. YAZ [Suspect]
     Indication: CONTRACEPTION
     Dosage: UNK UNK, QD
     Route: 048
     Dates: start: 20090201, end: 20091001
  3. YASMIN [Suspect]
     Indication: PRODUCT USED FOR UNKNOWN INDICATION
  4. PAXIL [Concomitant]
     Dosage: UNK
     Dates: start: 20060101
  5. LEXAPRO [Concomitant]
     Dosage: UNK
     Dates: start: 20090801

REACTIONS (4)
  - GALLBLADDER DISORDER [None]
  - CHOLELITHIASIS [None]
  - PANCREATITIS [None]
  - CHOLECYSTITIS CHRONIC [None]
